FAERS Safety Report 11144290 (Version 1)
Quarter: 2015Q2

REPORT INFORMATION
  Report Type: Spontaneous
  Country: US (occurrence: None)
  Receive Date: 20150526
  Receipt Date: 20150526
  Transmission Date: 20150821
  Serious: Yes (Death, Hospitalization, Disabling, Other)
  Sender: FDA-Public Use
  Company Number: QDR-2015-01018

PATIENT
  Age: 65 Year
  Sex: Male

DRUGS (1)
  1. LIORESAL [Suspect]
     Active Substance: BACLOFEN
     Indication: MUSCLE SPASTICITY

REACTIONS (6)
  - Urinary tract infection [None]
  - Pneumonia [None]
  - Pleural effusion [None]
  - Atelectasis [None]
  - Septic shock [None]
  - Pulmonary oedema [None]

NARRATIVE: CASE EVENT DATE: 20141228
